FAERS Safety Report 5446776-6 (Version None)
Quarter: 2007Q3

REPORT INFORMATION
  Report Type: 
  Country: None (occurrence: None)
  Receive Date: 20070907
  Receipt Date: 20070829
  Transmission Date: 20080115
  Serious: Yes (Other)
  Sender: FDA-Public Use
  Company Number: US-PFIZER INC-2007072175

PATIENT
  Sex: Female
  Weight: 72.6 kg

DRUGS (3)
  1. LIPITOR [Suspect]
     Indication: BLOOD CHOLESTEROL INCREASED
  2. LOESTRIN [Interacting]
     Indication: CONTRACEPTION
     Dates: start: 20060801, end: 20070801
  3. IBUPROFEN [Concomitant]

REACTIONS (5)
  - BLOOD CHOLESTEROL INCREASED [None]
  - DRUG INTERACTION [None]
  - HIGH DENSITY LIPOPROTEIN [None]
  - LOW DENSITY LIPOPROTEIN [None]
  - WRONG TECHNIQUE IN DRUG USAGE PROCESS [None]
